FAERS Safety Report 9908082 (Version 1)
Quarter: 2014Q1

REPORT INFORMATION
  Report Type: Report from Study
  Country: US (occurrence: US)
  Receive Date: 20140219
  Receipt Date: 20140219
  Transmission Date: 20141002
  Serious: Yes (Hospitalization)
  Sender: FDA-Public Use
  Company Number: US-ROCHE-1349810

PATIENT
  Age: 63 Year
  Sex: Female

DRUGS (4)
  1. LUCENTIS [Suspect]
     Indication: DIABETES MELLITUS
     Dosage: BOTH EYES
     Route: 050
  2. LUCENTIS [Suspect]
     Indication: CONJUNCTIVAL HAEMORRHAGE
  3. LEVEMIR [Concomitant]
  4. NOVOLOG [Concomitant]

REACTIONS (7)
  - Convulsion [Recovered/Resolved]
  - Fall [Recovered/Resolved]
  - Blood glucose decreased [Unknown]
  - Abdominal discomfort [Unknown]
  - Dizziness [Unknown]
  - Hyperhidrosis [Unknown]
  - Blindness transient [Unknown]
